FAERS Safety Report 17053520 (Version 2)
Quarter: 2021Q1

REPORT INFORMATION
  Report Type: Spontaneous
  Country: US (occurrence: US)
  Receive Date: 20191120
  Receipt Date: 20210106
  Transmission Date: 20210419
  Serious: Yes (Death, Hospitalization)
  Sender: FDA-Public Use
  Company Number: US-BAYER-2019-071918

PATIENT
  Age: 80 Year
  Sex: Male

DRUGS (25)
  1. ZOFRAN [Concomitant]
     Active Substance: ONDANSETRON HYDROCHLORIDE
  2. PROCHLORPERAZINE. [Concomitant]
     Active Substance: PROCHLORPERAZINE
  3. GLIPIZIDE. [Concomitant]
     Active Substance: GLIPIZIDE
  4. FUROSEMIDE. [Concomitant]
     Active Substance: FUROSEMIDE
  5. NITROFURANTOIN. [Concomitant]
     Active Substance: NITROFURANTOIN
  6. SEROQUEL [Concomitant]
     Active Substance: QUETIAPINE FUMARATE
  7. MAGNESIUM [Concomitant]
     Active Substance: MAGNESIUM
  8. XARELTO [Suspect]
     Active Substance: RIVAROXABAN
     Indication: PULMONARY EMBOLISM
     Dosage: 15 MG, BID
     Route: 048
     Dates: start: 20181001, end: 20181104
  9. ASPIRIN (CARDIO) [Suspect]
     Active Substance: ASPIRIN
     Indication: PRODUCT USED FOR UNKNOWN INDICATION
     Dosage: UNK
     Route: 065
     Dates: start: 20150402, end: 20181011
  10. PROCHLORPERAZINE. [Concomitant]
     Active Substance: PROCHLORPERAZINE
  11. TRAMADOL. [Concomitant]
     Active Substance: TRAMADOL
  12. LEVEMIR [Concomitant]
     Active Substance: INSULIN DETEMIR
  13. TYLENOL [Concomitant]
     Active Substance: ACETAMINOPHEN
  14. ALBUTEROL [SALBUTAMOL] [Concomitant]
     Active Substance: ALBUTEROL
  15. ENOXAPARIN [Concomitant]
     Active Substance: ENOXAPARIN
  16. FERROSOL [Concomitant]
  17. XARELTO [Suspect]
     Active Substance: RIVAROXABAN
     Indication: PULMONARY EMBOLISM
     Dosage: 15 MG TWICE DAILY FOR 21 DAYS AND THEN 20 MG ONCE DAILY
     Route: 048
     Dates: start: 20180810, end: 20180829
  18. ALLOPURINOL. [Concomitant]
     Active Substance: ALLOPURINOL
  19. DUTASTERIDE. [Concomitant]
     Active Substance: DUTASTERIDE
  20. LEVAQUIN [Concomitant]
     Active Substance: LEVOFLOXACIN
  21. ACYCLOVIR [ACICLOVIR] [Concomitant]
     Active Substance: ACYCLOVIR
  22. ATIVAN [Concomitant]
     Active Substance: LORAZEPAM
  23. COLACE [Concomitant]
     Active Substance: DOCUSATE SODIUM
  24. VITAMIN B COMPLEX [Concomitant]
     Active Substance: CYANOCOBALAMIN\DEXPANTHENOL\NIACINAMIDE\PYRIDOXINE HYDROCHLORIDE\RIBOFLAVIN 5^-PHOSPHATE SODIUM\THIAMINE HYDROCHLORIDE\VITAMIN B COMPLEX
  25. SODIUM CHLORIDE. [Concomitant]
     Active Substance: SODIUM CHLORIDE

REACTIONS (2)
  - Gastrointestinal haemorrhage [Unknown]
  - Hypovolaemic shock [Recovering/Resolving]

NARRATIVE: CASE EVENT DATE: 20180824
